FAERS Safety Report 17313666 (Version 3)
Quarter: 2020Q1

REPORT INFORMATION
  Report Type: Spontaneous
  Country: GB (occurrence: GB)
  Receive Date: 20200124
  Receipt Date: 20200225
  Transmission Date: 20200409
  Serious: Yes (Life-Threatening, Other)
  Sender: FDA-Public Use
  Company Number: GB-TEVA-2020-GB-1171884

PATIENT
  Age: 60 Year
  Sex: Female
  Weight: 106.1 kg

DRUGS (13)
  1. ENSTILAR [Concomitant]
     Active Substance: BETAMETHASONE DIPROPIONATE\CALCIPOTRIENE HYDRATE
     Dosage: 50MICROGRAMS/G ONCE A DAY
     Dates: start: 20190214, end: 20190225
  2. DOVOBET [Concomitant]
     Active Substance: BETAMETHASONE\CALCIPOTRIENE
     Dates: start: 20190115
  3. CALCICHEW [Concomitant]
     Active Substance: CALCIUM CARBONATE
     Dosage: 2 DOSAGE FORMS
     Dates: start: 20190115
  4. AMOXICILLIN. [Suspect]
     Active Substance: AMOXICILLIN
     Indication: BRONCHITIS
     Dosage: 1500MG
     Route: 048
     Dates: start: 20190115, end: 20190115
  5. HYDROXOCOBALAMIN [Concomitant]
     Active Substance: HYDROXOCOBALAMIN
     Dosage: 1MG/1ML. AS DIRECTED
     Dates: start: 20190123, end: 20190225
  6. HYDROMOL OINTMENT [Concomitant]
     Active Substance: PARAFFIN\WAX, EMULSIFYING
     Dosage: WHEN REQUIRED
     Dates: start: 20190225
  7. CLARITHROMYCIN. [Concomitant]
     Active Substance: CLARITHROMYCIN
     Dosage: 1000MG
     Dates: start: 20190115
  8. DOVONEX [Concomitant]
     Active Substance: CALCIPOTRIENE
     Dosage: 50MICROGRAMS/G FOR 2 WEEKS
     Dates: start: 20181219
  9. AMLODIPINE [Concomitant]
     Active Substance: AMLODIPINE BESYLATE
     Dosage: 5MG
     Dates: start: 20190225
  10. BETAMETHASONE AND CALCIPOTRIOL [Concomitant]
     Dosage: WHEN REQUIRED
     Dates: start: 20190115
  11. VITAMINS NOS [Concomitant]
     Active Substance: VITAMINS
     Dosage: 2 DOSAGE FORMS
     Dates: start: 20190115, end: 20190225
  12. VITAMIN SUPPLEMENT [Concomitant]
     Active Substance: VITAMINS
     Dosage: AS PER HOSPITAL ADVICE
     Dates: start: 20190115
  13. CETRABEN EMOLLIENT CREAM [Concomitant]
     Dosage: WHEN REQUIRED
     Dates: start: 20190225

REACTIONS (5)
  - Lip swelling [Unknown]
  - Chest discomfort [Unknown]
  - Anaphylactoid reaction [Unknown]
  - Dyspnoea [Recovered/Resolved]
  - Dyspnoea [Unknown]

NARRATIVE: CASE EVENT DATE: 20190115
